FAERS Safety Report 16031447 (Version 1)
Quarter: 2019Q1

REPORT INFORMATION
  Report Type: Spontaneous
  Country: US (occurrence: US)
  Receive Date: 20190304
  Receipt Date: 20190304
  Transmission Date: 20190418
  Serious: Yes (Other)
  Sender: FDA-Public Use
  Company Number: US-PFIZER INC-2018455044

PATIENT
  Age: 65 Year
  Sex: Female
  Weight: 64.41 kg

DRUGS (4)
  1. VFEND [Suspect]
     Active Substance: VORICONAZOLE
     Indication: LUNG TRANSPLANT
     Dosage: 750 MG, 2X/DAY
  2. VFEND [Suspect]
     Active Substance: VORICONAZOLE
     Dosage: 200 MG, 2X/DAY(200 MG TABLET 2 TIMES A DAY, IN ADDITION TAKE 50 MG TABLET 2 TIMES DAY)
     Route: 048
  3. VFEND [Suspect]
     Active Substance: VORICONAZOLE
     Dosage: 50 MG, 2X/DAY (200 MG TABLET 2 TIMES A DAY, IN ADDITION TAKE 50 MG TABLET 2 TIMES DAY)
     Route: 048
  4. VFEND [Suspect]
     Active Substance: VORICONAZOLE
     Dosage: 200 MG, 3X/DAY

REACTIONS (5)
  - Labile blood pressure [Not Recovered/Not Resolved]
  - Respiratory syncytial virus infection [Recovering/Resolving]
  - Diabetes mellitus [Unknown]
  - Overdose [Unknown]
  - Product use in unapproved indication [Unknown]

NARRATIVE: CASE EVENT DATE: 20181018
